FAERS Safety Report 5087116-4 (Version None)
Quarter: 2006Q3

REPORT INFORMATION
  Report Type: 
  Country: None (occurrence: None)
  Receive Date: 20060821
  Receipt Date: 20060808
  Transmission Date: 20061208
  Serious: Yes (Death)
  Sender: FDA-Public Use
  Company Number: 2006090832

PATIENT
  Age: 55 Year
  Sex: Female

DRUGS (1)
  1. LYRICA [Suspect]
     Indication: BACK PAIN
     Dosage: 150 (75 MG, 2 IN 1 D) ORAL
     Route: 048
     Dates: start: 20060301, end: 20060301

REACTIONS (3)
  - DIZZINESS [None]
  - MYOCARDIAL INFARCTION [None]
  - VOMITING [None]
